FAERS Safety Report 19104584 (Version 1)
Quarter: 2021Q2

REPORT INFORMATION
  Report Type: Spontaneous
  Country: MA (occurrence: MA)
  Receive Date: 20210408
  Receipt Date: 20210408
  Transmission Date: 20210717
  Serious: No
  Sender: FDA-Public Use
  Company Number: MA-LUPIN PHARMACEUTICALS INC.-2021-04292

PATIENT
  Age: 40 Year
  Sex: Female

DRUGS (3)
  1. PREDNISONE. [Concomitant]
     Active Substance: PREDNISONE
     Indication: ASTHMA
     Dosage: 1 MILLIGRAM/KILOGRAM, QD
     Route: 048
  2. ALBUTEROL SULFATE. [Suspect]
     Active Substance: ALBUTEROL SULFATE
     Indication: ASTHMA
     Dosage: UNK (SALBUTAMOL IN NEBULISATION; 2 UNIDOSES OF 2.5MG/2.5ML BY NEBULISATION OF 15 MIN)
     Route: 055
  3. LORATADINE. [Concomitant]
     Active Substance: LORATADINE
     Indication: ASTHMA
     Dosage: 10 MILLIGRAM, QD
     Route: 065

REACTIONS (2)
  - Drug hypersensitivity [Unknown]
  - Urticaria [Unknown]
